FAERS Safety Report 7413121-6 (Version None)
Quarter: 2011Q2

REPORT INFORMATION
  Report Type: 
  Country: None (occurrence: None)
  Receive Date: 20110413
  Receipt Date: 20110405
  Transmission Date: 20111010
  Serious: Yes (Hospitalization)
  Sender: FDA-Public Use
  Company Number: JP-B.I. PHARMACEUTICALS,INC./RIDGEFIELD-2011-BP-10269YA

PATIENT
  Age: 79 Year
  Sex: Male

DRUGS (1)
  1. HARNAL (TAMSULOSIN) ORODISPERSABLE CR [Suspect]
     Indication: BENIGN PROSTATIC HYPERPLASIA
     Route: 048

REACTIONS (1)
  - BLOOD GLUCOSE INCREASED [None]
